FAERS Safety Report 23706611 (Version 1)
Quarter: 2024Q2

REPORT INFORMATION
  Report Type: Report from Study
  Country: US (occurrence: None)
  Receive Date: 20240404
  Receipt Date: 20240404
  Transmission Date: 20240715
  Serious: Yes (Hospitalization)
  Sender: FDA-Public Use
  Company Number: 2024A075229

PATIENT
  Sex: Female

DRUGS (2)
  1. LYNPARZA [Suspect]
     Active Substance: OLAPARIB
     Indication: Breast cancer female
     Route: 048
     Dates: start: 201806
  2. ORSERDU [Suspect]
     Active Substance: ELACESTRANT
     Indication: Breast cancer female
     Route: 048
     Dates: start: 202402

REACTIONS (7)
  - Ventricular extrasystoles [Unknown]
  - Influenza [Unknown]
  - Airway compression [Unknown]
  - Urinary tract infection [Unknown]
  - Chest pain [Unknown]
  - Feeling abnormal [Unknown]
  - Neutropenia [Unknown]
